FAERS Safety Report 5391715-X (Version None)
Quarter: 2007Q3

REPORT INFORMATION
  Report Type: 
  Country: None (occurrence: None)
  Receive Date: 20070719
  Receipt Date: 20070718
  Transmission Date: 20080115
  Serious: Yes (Life-Threatening, Hospitalization)
  Sender: FDA-Public Use
  Company Number: US-MERCK-0707USA01099

PATIENT
  Age: 69 Year
  Sex: Female
  Weight: 74 kg

DRUGS (12)
  1. JANUMET [Suspect]
     Indication: DIABETES MELLITUS
     Route: 048
     Dates: start: 20070608, end: 20070601
  2. CHLORACON [Concomitant]
     Route: 065
  3. COUMADIN [Concomitant]
     Route: 065
  4. TOPROL-XL [Concomitant]
     Route: 065
  5. BENICAR [Concomitant]
     Route: 065
  6. LANOXIN [Concomitant]
     Route: 065
  7. LASIX [Concomitant]
     Route: 065
  8. ENALAPRIL MALEATE [Concomitant]
     Route: 065
  9. ULTRAM [Concomitant]
     Route: 065
  10. PRANDIN [Concomitant]
     Route: 065
  11. VERAPAMIL [Concomitant]
     Route: 065
  12. CARTIA XT [Concomitant]
     Route: 065

REACTIONS (4)
  - ATRIAL FIBRILLATION [None]
  - DYSPNOEA [None]
  - OEDEMA [None]
  - TACHYCARDIA [None]
